FAERS Safety Report 5158160-3 (Version None)
Quarter: 2006Q4

REPORT INFORMATION
  Report Type: 
  Country: None (occurrence: None)
  Receive Date: 20061120
  Receipt Date: 20061120
  Transmission Date: 20070319
  Serious: No
  Sender: FDA-Public Use
  Company Number: None

PATIENT
  Age: 60 Year
  Sex: Male
  Weight: 79.3795 kg

DRUGS (1)
  1. KETEK [Suspect]
     Indication: SINUSITIS
     Dosage: 400MG  2 PILLS, DAILY, PO
     Route: 048
     Dates: start: 20050710, end: 20050720

REACTIONS (8)
  - ARTHRALGIA [None]
  - ASTHENIA [None]
  - GAIT DISTURBANCE [None]
  - LOWER LIMB FRACTURE [None]
  - MENISCUS LESION [None]
  - MUSCULAR WEAKNESS [None]
  - TENDERNESS [None]
  - VISUAL ACUITY REDUCED [None]
